FAERS Safety Report 7755519 (Version 3)
Quarter: 2013Q2

REPORT INFORMATION
  Report Type: Spontaneous
  Country: US (occurrence: US)
  Receive Date: 20110111
  Receipt Date: 20130508
  Transmission Date: 20140414
  Serious: No
  Sender: FDA-Public Use
  Company Number: US-B.I. PHARMACEUTICALS,INC./RIDGEFIELD-2010-BP-15392BP

PATIENT
  Age: 64 Year
  Sex: Male

DRUGS (5)
  1. PRADAXA [Suspect]
     Indication: ATRIAL FIBRILLATION
     Dosage: 300 MG
     Route: 048
     Dates: start: 20101219
  2. AMIODARONE [Concomitant]
     Indication: ATRIAL FIBRILLATION
     Dosage: 200 MG
     Route: 048
  3. DILTIAZEM [Concomitant]
     Indication: HYPERTENSION
  4. LOSARTAN [Concomitant]
     Indication: HYPERTENSION
  5. VYTORIN [Concomitant]
     Indication: BLOOD CHOLESTEROL INCREASED

REACTIONS (9)
  - Vomiting [Recovered/Resolved]
  - Nausea [Not Recovered/Not Resolved]
  - Fatigue [Not Recovered/Not Resolved]
  - Nasopharyngitis [Not Recovered/Not Resolved]
  - Cough [Not Recovered/Not Resolved]
  - Oropharyngeal pain [Not Recovered/Not Resolved]
  - Nasopharyngitis [Not Recovered/Not Resolved]
  - Oropharyngeal pain [Not Recovered/Not Resolved]
  - Rhinorrhoea [Not Recovered/Not Resolved]
